FAERS Safety Report 6957810-6 (Version None)
Quarter: 2010Q3

REPORT INFORMATION
  Report Type: 
  Country: None (occurrence: None)
  Receive Date: 20100830
  Receipt Date: 20100830
  Transmission Date: 20110219
  Serious: Yes (Life-Threatening, Hospitalization, Other)
  Sender: FDA-Public Use
  Company Number: None

PATIENT
  Age: 47 Year
  Sex: Female
  Weight: 61.2356 kg

DRUGS (1)
  1. LEVAQUIN [Suspect]
     Indication: PNEUMONIA
     Dosage: 750 MG. 1 DAY PO
     Route: 048
     Dates: start: 20100812, end: 20100813

REACTIONS (10)
  - DECREASED APPETITE [None]
  - DYSPNOEA [None]
  - ERYTHEMA NODOSUM [None]
  - FATIGUE [None]
  - JOINT SWELLING [None]
  - MOBILITY DECREASED [None]
  - OEDEMA PERIPHERAL [None]
  - PHARYNGEAL OEDEMA [None]
  - STEVENS-JOHNSON SYNDROME [None]
  - URTICARIA [None]
